FAERS Safety Report 24075197 (Version 1)
Quarter: 2024Q3

REPORT INFORMATION
  Report Type: Spontaneous
  Country: DE (occurrence: DE)
  Receive Date: 20240710
  Receipt Date: 20240710
  Transmission Date: 20241016
  Serious: Yes (Death, Other)
  Sender: AEGERION
  Company Number: DE-AMRYT PHARMACEUTICALS DAC-AEGR006147

PATIENT

DRUGS (1)
  1. FILSUVEZ [Suspect]
     Active Substance: BIRCH TRITERPENES
     Indication: Epidermolysis bullosa
     Dosage: USED AT EVERY DRESSING CHANGE, EVERY DIAPER CHANGE (2X/DAY), SEVERAL TIMES PER DAY
     Dates: start: 20221014, end: 20221104

REACTIONS (6)
  - Wound infection [Fatal]
  - Pyrexia [Recovered/Resolved]
  - Wound complication [Unknown]
  - Productive cough [Recovered/Resolved]
  - Cough [Recovered/Resolved]
  - Coronavirus infection [Recovered/Resolved]

NARRATIVE: CASE EVENT DATE: 20221028
